FAERS Safety Report 13060735 (Version 3)
Quarter: 2017Q3

REPORT INFORMATION
  Report Type: Spontaneous
  Country: US (occurrence: US)
  Receive Date: 20161225
  Receipt Date: 20170707
  Transmission Date: 20171127
  Serious: Yes (Hospitalization)
  Sender: FDA-Public Use
  Company Number: US-ASTRAZENECA-2016SF33588

PATIENT
  Age: 61 Year
  Sex: Female
  Weight: 97.1 kg

DRUGS (3)
  1. SYMBICORT [Suspect]
     Active Substance: BUDESONIDE\FORMOTEROL FUMARATE DIHYDRATE
     Indication: CHRONIC OBSTRUCTIVE PULMONARY DISEASE
     Dosage: 80/4.5 2 PUFFS
     Route: 055
     Dates: start: 201201
  2. PROVENTIL [Concomitant]
     Active Substance: ALBUTEROL
     Indication: DRUG THERAPY
     Dates: end: 2014
  3. PROAIR HFA [Concomitant]
     Active Substance: ALBUTEROL SULFATE
     Indication: DRUG THERAPY
     Dosage: 90.0UG AS REQUIRED
     Route: 055
     Dates: start: 2014

REACTIONS (7)
  - Intentional product misuse [Unknown]
  - Off label use [Unknown]
  - Wrong technique in product usage process [Unknown]
  - Weight increased [Unknown]
  - Intentional device misuse [Unknown]
  - Body height decreased [Not Recovered/Not Resolved]
  - Device failure [Unknown]

NARRATIVE: CASE EVENT DATE: 2012
